FAERS Safety Report 9925166 (Version 1)
Quarter: 2014Q1

REPORT INFORMATION
  Report Type: Spontaneous
  Country: US (occurrence: None)
  Receive Date: 20140225
  Receipt Date: 20140225
  Transmission Date: 20141002
  Serious: Yes (Death)
  Sender: FDA-Public Use
  Company Number: None

PATIENT
  Age: 81 Year
  Sex: Male

DRUGS (7)
  1. ZYTIGA [Suspect]
     Route: 048
     Dates: start: 20131114, end: 20140217
  2. BICALUTAMIDE [Concomitant]
  3. LOVASTATIN [Concomitant]
  4. ASA [Concomitant]
  5. OXYCODONE [Concomitant]
  6. ATENOLOL [Concomitant]
  7. LISINOPRIL [Concomitant]

REACTIONS (1)
  - Cardiac arrest [None]
